FAERS Safety Report 11177377 (Version 2)
Quarter: 2015Q2

REPORT INFORMATION
  Report Type: Spontaneous
  Country: TH (occurrence: TH)
  Receive Date: 20150610
  Receipt Date: 20150629
  Transmission Date: 20150821
  Serious: Yes (Hospitalization, Other)
  Sender: FDA-Public Use
  Company Number: TH-UCBSA-2015018407

PATIENT
  Age: 15 Year
  Sex: Male
  Weight: 82 kg

DRUGS (4)
  1. PHENOBARB [Concomitant]
     Active Substance: PHENOBARBITAL SODIUM
     Indication: GENERALISED TONIC-CLONIC SEIZURE
     Dosage: 60 MG, 2X/DAY (BID)
     Dates: start: 20150409, end: 201505
  2. KEPPRA [Suspect]
     Active Substance: LEVETIRACETAM
     Indication: PRODUCT USED FOR UNKNOWN INDICATION
     Dosage: 500 MG, 2X/DAY (BID), IN EVENING
     Route: 048
     Dates: start: 20150519, end: 20150521
  3. DILANTIN [Concomitant]
     Active Substance: PHENYTOIN
     Indication: GENERALISED TONIC-CLONIC SEIZURE
     Dosage: 50 MG, 1 TABLET AT NIGHT
     Dates: start: 20150409, end: 201505
  4. DILANTIN [Concomitant]
     Active Substance: PHENYTOIN
     Dosage: 100 MG ,3 CAPSULES AT NIGHT
     Dates: start: 201505, end: 201505

REACTIONS (2)
  - Drug reaction with eosinophilia and systemic symptoms [Unknown]
  - Hepatitis [Unknown]

NARRATIVE: CASE EVENT DATE: 201505
